FAERS Safety Report 6887040-8 (Version None)
Quarter: 2010Q3

REPORT INFORMATION
  Report Type: 
  Country: None (occurrence: None)
  Receive Date: 20100730
  Receipt Date: 20100716
  Transmission Date: 20110219
  Serious: Yes (Hospitalization)
  Sender: FDA-Public Use
  Company Number: BR-MEDIMMUNE-MEDI-0011361

PATIENT
  Sex: Female
  Weight: 5.1 kg

DRUGS (6)
  1. SYNAGIS [Suspect]
     Dates: start: 20100319, end: 20100319
  2. AD-TIL [Suspect]
     Indication: VITAMIN SUPPLEMENTATION
     Dosage: 2 DROPS
     Route: 048
  3. DOMPERIDON [Concomitant]
     Indication: NASOPHARYNGEAL REFLUX
     Route: 048
  4. FLUTICASONE PROPIONATE [Concomitant]
     Indication: TRACHEAL DILATATION
  5. FERROGLYCINATE CHELATE [Concomitant]
     Route: 048
  6. GEVITAL [Concomitant]
     Indication: VITAMIN SUPPLEMENTATION
     Route: 048

REACTIONS (5)
  - BRONCHOSPASM [None]
  - HYPOXIA [None]
  - INCREASED BRONCHIAL SECRETION [None]
  - INCREASED UPPER AIRWAY SECRETION [None]
  - OXYGEN SATURATION DECREASED [None]
